FAERS Safety Report 10356230 (Version 1)
Quarter: 2014Q3

REPORT INFORMATION
  Report Type: Spontaneous
  Country: US (occurrence: US)
  Receive Date: 20140801
  Receipt Date: 20140801
  Transmission Date: 20150326
  Serious: No
  Sender: FDA-Public Use
  Company Number: US-009507513-1407USA007004

PATIENT
  Age: 57 Year
  Sex: Male
  Weight: 108.84 kg

DRUGS (1)
  1. VICTRELIS [Suspect]
     Active Substance: BOCEPREVIR
     Indication: HEPATITIS
     Dosage: DOSE REPORTED AS 4 (UNIT NOT PROVIDED), EVERY 8 HOURS
     Route: 048
     Dates: start: 20120928, end: 20121026

REACTIONS (2)
  - Product quality issue [Unknown]
  - Choking [Unknown]

NARRATIVE: CASE EVENT DATE: 20121026
